FAERS Safety Report 10691217 (Version 1)
Quarter: 2015Q1

REPORT INFORMATION
  Report Type: Other
  Country: FR (occurrence: FR)
  Receive Date: 20150105
  Receipt Date: 20150105
  Transmission Date: 20150720
  Serious: Yes (Hospitalization)
  Sender: FDA-Public Use
  Company Number: FR-MYLANLABS-2014M1015557

PATIENT

DRUGS (2)
  1. CISPLATINE MYLAN [Suspect]
     Active Substance: CISPLATIN
     Indication: SMALL CELL CARCINOMA OF THE CERVIX
     Dosage: 193 MG, CYCLE
     Route: 042
     Dates: start: 20140618, end: 20140618
  2. ETOPOSIDE MYLAN [Suspect]
     Active Substance: ETOPOSIDE
     Indication: SMALL CELL CARCINOMA OF THE CERVIX
     Dosage: 190 MG, CYCLE
     Route: 042
     Dates: start: 20140618, end: 20140618

REACTIONS (2)
  - Neutropenia [Recovered/Resolved]
  - Hyperthermia [Recovered/Resolved]

NARRATIVE: CASE EVENT DATE: 20140630
